FAERS Safety Report 7204224-X (Version None)
Quarter: 2010Q4

REPORT INFORMATION
  Report Type: 
  Country: None (occurrence: None)
  Receive Date: 20101230
  Receipt Date: 20101222
  Transmission Date: 20110411
  Serious: Yes (Other)
  Sender: FDA-Public Use
  Company Number: US-JNJCH-2010026551

PATIENT
  Sex: Male

DRUGS (1)
  1. LUBRIDERM DAILY MOISTURE [Suspect]
     Indication: PRODUCT USED FOR UNKNOWN INDICATION
     Dosage: TEXT:UNKNOWN
     Route: 061

REACTIONS (3)
  - DERMATITIS CONTACT [None]
  - HYPERSENSITIVITY [None]
  - IMPAIRED WORK ABILITY [None]
